FAERS Safety Report 25236171 (Version 5)
Quarter: 2025Q2

REPORT INFORMATION
  Report Type: Spontaneous
  Country: SK (occurrence: SK)
  Receive Date: 20250424
  Receipt Date: 20250609
  Transmission Date: 20250716
  Serious: Yes (Hospitalization, Other)
  Sender: MYLAN
  Company Number: SK-SANDOZ-SDZ2025SK022401

PATIENT
  Age: 59 Year
  Sex: Male

DRUGS (40)
  1. APIXABAN [Suspect]
     Active Substance: APIXABAN
     Indication: Product used for unknown indication
  2. APIXABAN [Suspect]
     Active Substance: APIXABAN
     Route: 065
  3. APIXABAN [Suspect]
     Active Substance: APIXABAN
     Route: 065
  4. APIXABAN [Suspect]
     Active Substance: APIXABAN
  5. RIVAROXABAN [Suspect]
     Active Substance: RIVAROXABAN
     Indication: Product used for unknown indication
  6. RIVAROXABAN [Suspect]
     Active Substance: RIVAROXABAN
     Route: 065
  7. RIVAROXABAN [Suspect]
     Active Substance: RIVAROXABAN
     Route: 065
  8. RIVAROXABAN [Suspect]
     Active Substance: RIVAROXABAN
  9. CLOPIDOGREL [Suspect]
     Active Substance: CLOPIDOGREL BISULFATE
     Indication: Product used for unknown indication
     Dosage: 75 MILLIGRAM, QD
  10. CLOPIDOGREL [Suspect]
     Active Substance: CLOPIDOGREL BISULFATE
     Dosage: 75 MILLIGRAM, QD
     Route: 065
  11. CLOPIDOGREL [Suspect]
     Active Substance: CLOPIDOGREL BISULFATE
     Dosage: 75 MILLIGRAM, QD
     Route: 065
  12. CLOPIDOGREL [Suspect]
     Active Substance: CLOPIDOGREL BISULFATE
     Dosage: 75 MILLIGRAM, QD
  13. WARFARIN [Concomitant]
     Active Substance: WARFARIN
     Indication: Product used for unknown indication
  14. WARFARIN [Concomitant]
     Active Substance: WARFARIN
     Route: 065
  15. WARFARIN [Concomitant]
     Active Substance: WARFARIN
     Route: 065
  16. WARFARIN [Concomitant]
     Active Substance: WARFARIN
  17. ASPIRIN [Concomitant]
     Active Substance: ASPIRIN
     Indication: Product used for unknown indication
  18. ASPIRIN [Concomitant]
     Active Substance: ASPIRIN
     Route: 065
  19. ASPIRIN [Concomitant]
     Active Substance: ASPIRIN
     Route: 065
  20. ASPIRIN [Concomitant]
     Active Substance: ASPIRIN
  21. INTRON A [Concomitant]
     Active Substance: INTERFERON ALFA-2B
  22. INTRON A [Concomitant]
     Active Substance: INTERFERON ALFA-2B
  23. INTRON A [Concomitant]
     Active Substance: INTERFERON ALFA-2B
     Route: 065
  24. INTRON A [Concomitant]
     Active Substance: INTERFERON ALFA-2B
     Route: 065
  25. INTRON A [Concomitant]
     Active Substance: INTERFERON ALFA-2B
  26. INTRON A [Concomitant]
     Active Substance: INTERFERON ALFA-2B
  27. INTRON A [Concomitant]
     Active Substance: INTERFERON ALFA-2B
     Route: 065
  28. INTRON A [Concomitant]
     Active Substance: INTERFERON ALFA-2B
     Route: 065
  29. INTRON A [Concomitant]
     Active Substance: INTERFERON ALFA-2B
  30. INTRON A [Concomitant]
     Active Substance: INTERFERON ALFA-2B
     Route: 065
  31. INTRON A [Concomitant]
     Active Substance: INTERFERON ALFA-2B
  32. INTRON A [Concomitant]
     Active Substance: INTERFERON ALFA-2B
     Route: 065
  33. HYDROXYUREA [Concomitant]
     Active Substance: HYDROXYUREA
  34. HYDROXYUREA [Concomitant]
     Active Substance: HYDROXYUREA
  35. HYDROXYUREA [Concomitant]
     Active Substance: HYDROXYUREA
     Route: 065
  36. HYDROXYUREA [Concomitant]
     Active Substance: HYDROXYUREA
     Route: 065
  37. HYDROXYUREA [Concomitant]
     Active Substance: HYDROXYUREA
     Dosage: 500 MILLIGRAM, QD (DAILY)
  38. HYDROXYUREA [Concomitant]
     Active Substance: HYDROXYUREA
     Dosage: 500 MILLIGRAM, QD (DAILY)
  39. HYDROXYUREA [Concomitant]
     Active Substance: HYDROXYUREA
     Dosage: 500 MILLIGRAM, QD (DAILY)
     Route: 065
  40. HYDROXYUREA [Concomitant]
     Active Substance: HYDROXYUREA
     Dosage: 500 MILLIGRAM, QD (DAILY)
     Route: 065

REACTIONS (20)
  - Thrombosis [Unknown]
  - Pulmonary embolism [Unknown]
  - Haemoptysis [Unknown]
  - Hyperbilirubinaemia [Unknown]
  - Portal hypertension [Unknown]
  - Pelvic venous thrombosis [Unknown]
  - Portal vein thrombosis [Unknown]
  - Vena cava thrombosis [Unknown]
  - Sticky platelet syndrome [Unknown]
  - Thrombophlebitis [Unknown]
  - Varicophlebitis [Unknown]
  - Drug intolerance [Unknown]
  - Pancreatic disorder [Unknown]
  - Rectal neoplasm [Unknown]
  - Hepatosplenomegaly [Unknown]
  - Rash [Unknown]
  - Diarrhoea [Unknown]
  - White blood cell count increased [Unknown]
  - Hepatomegaly [Unknown]
  - Splenomegaly [Unknown]

NARRATIVE: CASE EVENT DATE: 20100901
